FAERS Safety Report 6197212-6 (Version None)
Quarter: 2009Q2

REPORT INFORMATION
  Report Type: 
  Country: None (occurrence: None)
  Receive Date: 20090521
  Receipt Date: 20090505
  Transmission Date: 20091009
  Serious: Yes (Hospitalization, Other)
  Sender: FDA-Public Use
  Company Number: US-RANBAXY-2009US-22898

PATIENT

DRUGS (5)
  1. ISOPTIN SR [Suspect]
     Indication: DRUG USE FOR UNKNOWN INDICATION
     Dosage: 120 MG QD
     Route: 048
  2. FLORICET [Concomitant]
     Indication: HEADACHE
  3. TOPIRAMATE [Concomitant]
     Indication: DRUG USE FOR UNKNOWN INDICATION
  4. SUMATRIPTAN SUCCINATE [Concomitant]
     Indication: DRUG USE FOR UNKNOWN INDICATION
  5. AMITRIPTLINE HYDROCHLORIDE TAB [Concomitant]
     Indication: DRUG USE FOR UNKNOWN INDICATION

REACTIONS (9)
  - ATRIOVENTRICULAR BLOCK COMPLETE [None]
  - DRUG INTERACTION [None]
  - DRUG TOXICITY [None]
  - HEADACHE [None]
  - HYPERGLYCAEMIA [None]
  - MEDICATION ERROR [None]
  - METABOLIC ACIDOSIS [None]
  - PALPITATIONS [None]
  - RESPIRATORY FAILURE [None]
